FAERS Safety Report 8399648-1 (Version None)
Quarter: 2012Q2

REPORT INFORMATION
  Report Type: 
  Country: None (occurrence: None)
  Receive Date: 20120531
  Receipt Date: 20120525
  Transmission Date: 20120825
  Serious: Yes (Other)
  Sender: FDA-Public Use
  Company Number: VE-PFIZER INC-2012119997

PATIENT
  Age: 50 Year
  Sex: Male

DRUGS (1)
  1. CADUET [Suspect]
     Indication: HYPERTENSION
     Dosage: 5/10 MG, 2X/DAY
     Route: 048

REACTIONS (2)
  - WEIGHT DECREASED [None]
  - GASTRIC DISORDER [None]
